FAERS Safety Report 4342440-5 (Version None)
Quarter: 2004Q2

REPORT INFORMATION
  Report Type: 
  Country: None (occurrence: None)
  Receive Date: 20040416
  Receipt Date: 20040416
  Transmission Date: 20050107
  Serious: Yes (Other)
  Sender: FDA-Public Use
  Company Number: 2004023153

PATIENT
  Age: 94 Year
  Sex: Male

DRUGS (3)
  1. ATARAX [Suspect]
     Indication: HYPERSENSITIVITY
     Dosage: ORAL
     Route: 048
  2. HYDROXYZINE HCL [Suspect]
     Indication: HYPERSENSITIVITY
  3. MECLOZINE HYDROCHLORIDE (MECLOZINE HYDROCHLORIDE) [Concomitant]

REACTIONS (12)
  - ALLERGY TO PLANTS [None]
  - BENIGN PROSTATIC HYPERPLASIA [None]
  - CHOKING [None]
  - DECREASED APPETITE [None]
  - DRUG EFFECT DECREASED [None]
  - DYSPHAGIA [None]
  - DYSPNOEA [None]
  - HOUSE DUST ALLERGY [None]
  - MYCOTIC ALLERGY [None]
  - PHARMACEUTICAL PRODUCT COMPLAINT [None]
  - RHINORRHOEA [None]
  - WEIGHT DECREASED [None]
